FAERS Safety Report 9681737 (Version 1)
Quarter: 2013Q4

REPORT INFORMATION
  Report Type: Spontaneous
  Country: FR (occurrence: FR)
  Receive Date: 20131111
  Receipt Date: 20131111
  Transmission Date: 20140711
  Serious: Yes (Hospitalization)
  Sender: FDA-Public Use
  Company Number: FR-GLAXOSMITHKLINE-B0938051A

PATIENT
  Age: 84 Year
  Sex: Female

DRUGS (8)
  1. ZELITREX [Suspect]
     Indication: HERPES OPHTHALMIC
     Dosage: 500MG TWICE PER DAY
     Route: 048
     Dates: start: 20131004, end: 20131008
  2. PAROXETINE [Concomitant]
  3. KEPPRA [Concomitant]
  4. PERINDOPRIL [Concomitant]
  5. AMLOR [Concomitant]
  6. INDAPAMIDE [Concomitant]
  7. EUPRESSYL [Concomitant]
  8. FLUINDIONE [Concomitant]

REACTIONS (5)
  - Abnormal behaviour [Recovered/Resolved]
  - Hallucination [Recovered/Resolved]
  - Confusional state [Recovered/Resolved]
  - Aggression [Recovered/Resolved]
  - Frontotemporal dementia [Recovered/Resolved]
